FAERS Safety Report 5447768-3 (Version None)
Quarter: 2007Q3

REPORT INFORMATION
  Report Type: 
  Country: None (occurrence: None)
  Receive Date: 20070910
  Receipt Date: 20070903
  Transmission Date: 20080115
  Serious: Yes (Disabling)
  Sender: FDA-Public Use
  Company Number: NL-ASTRAZENECA-2007AC01328

PATIENT
  Age: 694 Month
  Sex: Female
  Weight: 57 kg

DRUGS (3)
  1. ARIMIDEX [Suspect]
     Indication: BREAST CANCER
     Route: 048
     Dates: start: 20050702
  2. CALCI CHEW [Concomitant]
     Indication: OSTEOPOROSIS
     Route: 048
     Dates: start: 20050202
  3. ACTONEL [Concomitant]
     Indication: OSTEOPOROSIS
     Route: 048
     Dates: start: 20050202

REACTIONS (2)
  - CARPAL TUNNEL SYNDROME [None]
  - TENDON DISORDER [None]
